FAERS Safety Report 12920348 (Version 1)
Quarter: 2016Q4

REPORT INFORMATION
  Report Type: Spontaneous
  Country: US (occurrence: US)
  Receive Date: 20161108
  Receipt Date: 20161108
  Transmission Date: 20170207
  Serious: No
  Sender: FDA-Public Use
  Company Number: US-JNJFOC-20161021484

PATIENT
  Sex: Female

DRUGS (1)
  1. ORTHO MICRONOR [Suspect]
     Active Substance: NORETHINDRONE
     Indication: CONTRACEPTION
     Route: 048
     Dates: start: 201609

REACTIONS (1)
  - Menstruation delayed [Unknown]

NARRATIVE: CASE EVENT DATE: 201610
